FAERS Safety Report 4798017-0 (Version None)
Quarter: 2005Q3

REPORT INFORMATION
  Report Type: 
  Country: None (occurrence: None)
  Receive Date: 20050929
  Receipt Date: 20050824
  Transmission Date: 20060218
  Serious: No
  Sender: FDA-Public Use
  Company Number: 05P-1963-0309119

PATIENT
  Age: 44 Year
  Sex: Female
  Weight: 102 kg

DRUGS (10)
  1. HUMIRA [Suspect]
     Indication: RHEUMATOID ARTHRITIS
     Dosage: 40 MG, 1 IN 2 WK, SUBCUTANEOUS
     Route: 058
     Dates: start: 20050817
  2. SULFASALAZINE [Concomitant]
  3. NABUMETONE [Concomitant]
  4. LEFLUNOMIDE [Concomitant]
  5. HYDROCHLOROTHIAZIDE [Concomitant]
  6. PREDNISONE [Concomitant]
  7. WELLBUTRIN [Concomitant]
  8. BENICAR [Concomitant]
  9. FOLIC ACID [Concomitant]
  10. LEVOTHYROXINE SODIUM [Concomitant]

REACTIONS (2)
  - ARTHROPOD BITE [None]
  - RASH GENERALISED [None]
